FAERS Safety Report 7401911-5 (Version None)
Quarter: 2011Q2

REPORT INFORMATION
  Report Type: 
  Country: None (occurrence: None)
  Receive Date: 20110408
  Receipt Date: 20110328
  Transmission Date: 20111010
  Serious: Yes (Hospitalization, Other)
  Sender: FDA-Public Use
  Company Number: US-JNJFOC-20110312490

PATIENT
  Sex: Female
  Weight: 69.4 kg

DRUGS (7)
  1. DURAGESIC [Suspect]
     Indication: BACK PAIN
     Route: 062
  2. MELOXICAM [Concomitant]
     Route: 048
  3. LYRICA [Concomitant]
     Indication: FIBROMYALGIA
     Route: 048
  4. PREVACID [Concomitant]
     Indication: GASTRIC ULCER
     Route: 048
  5. FENTANYL-100 [Suspect]
     Indication: BACK PAIN
     Dosage: 100+50 UG/HR PATCH
     Route: 062
  6. FENTANYL-100 [Suspect]
     Indication: BACK PAIN
     Dosage: 100 PLUS 50 UG/HR PATCH
     Route: 062
  7. COUMADIN [Concomitant]
     Indication: PROTEIN TOTAL DECREASED
     Route: 048

REACTIONS (7)
  - PAIN [None]
  - DERMATITIS CONTACT [None]
  - LYMPH NODE CANCER METASTATIC [None]
  - DEPENDENCE [None]
  - BREAST CANCER [None]
  - AGITATION [None]
  - PRODUCT ADHESION ISSUE [None]
